FAERS Safety Report 8345154-X (Version None)
Quarter: 2012Q2

REPORT INFORMATION
  Report Type: 
  Country: None (occurrence: None)
  Receive Date: 20120508
  Receipt Date: 20120501
  Transmission Date: 20120825
  Serious: Yes (Other)
  Sender: FDA-Public Use
  Company Number: US-TEVA-335900USA

PATIENT
  Sex: Female
  Weight: 104.42 kg

DRUGS (10)
  1. ZOLPIDEM [Concomitant]
  2. NUVIGIL [Suspect]
     Indication: PRODUCT USED FOR UNKNOWN INDICATION
     Route: 048
  3. AMPYRA [Suspect]
     Dosage: 20 MILLIGRAM;
     Route: 048
     Dates: start: 20100601
  4. AMITRIPTYLINE HCL [Concomitant]
  5. DONEPEZIL HCL [Concomitant]
  6. TRIAMTERENE [Concomitant]
  7. BACLOFEN [Concomitant]
  8. IBANDRONATE SODIUM [Concomitant]
  9. VENLAFAXINE [Concomitant]
  10. FINGOLIMOD HYDROCHLORIDE [Concomitant]

REACTIONS (4)
  - GAIT DISTURBANCE [None]
  - MULTIPLE SCLEROSIS [None]
  - CONVULSION [None]
  - INSOMNIA [None]
